FAERS Safety Report 6465315-4 (Version None)
Quarter: 2009Q4

REPORT INFORMATION
  Report Type: 
  Country: None (occurrence: None)
  Receive Date: 20091201
  Receipt Date: 20091117
  Transmission Date: 20100525
  Serious: Yes (Congenital Anomaly)
  Sender: FDA-Public Use
  Company Number: GB-MYLANLABS-2009S1019946

PATIENT
  Sex: Female
  Weight: 3 kg

DRUGS (2)
  1. METFORMIN HCL [Suspect]
     Indication: POLYCYSTIC OVARIES
     Route: 064
  2. CLOMID [Concomitant]
     Indication: DRUG USE FOR UNKNOWN INDICATION
     Route: 064

REACTIONS (2)
  - CLEFT LIP [None]
  - DRUG EXPOSURE DURING PREGNANCY [None]
